FAERS Safety Report 10752360 (Version 1)
Quarter: 2015Q1

REPORT INFORMATION
  Report Type: Spontaneous
  Country: DE (occurrence: DE)
  Receive Date: 20150130
  Receipt Date: 20150130
  Transmission Date: 20150721
  Serious: Yes (Death, Congenital Anomaly, Other)
  Sender: FDA-Public Use
  Company Number: DE-TEVA-535647GER

PATIENT
  Age: 1 Day
  Sex: Male

DRUGS (11)
  1. THYBON [Concomitant]
     Indication: AUTOIMMUNE THYROIDITIS
     Dosage: 10 MICROGRAM DAILY;
     Route: 064
     Dates: start: 20130906, end: 20131104
  2. BUSCOPAN [Concomitant]
     Active Substance: BUTYLSCOPOLAMINE BROMIDE
     Indication: KIDNEY INFECTION
     Route: 064
  3. CEFURAX [Concomitant]
     Active Substance: CEFUROXIME AXETIL
     Indication: KIDNEY INFECTION
     Route: 064
  4. PREDNISOLON [Suspect]
     Active Substance: PREDNISOLONE
     Indication: ASSISTED FERTILISATION
     Dosage: 15 MILLIGRAM DAILY;
     Route: 064
     Dates: start: 20130906, end: 20140421
  5. ASS 100 [Concomitant]
     Active Substance: ASPIRIN
     Indication: ASSISTED FERTILISATION
     Route: 064
     Dates: start: 20130906, end: 20140421
  6. UTROGEST [Concomitant]
     Active Substance: PROGESTERONE
     Indication: ASSISTED FERTILISATION
     Route: 064
  7. FRAGMIN [Concomitant]
     Active Substance: DALTEPARIN SODIUM
     Indication: ASSISTED FERTILISATION
     Dosage: 5000 IU (INTERNATIONAL UNIT) DAILY;
     Route: 064
  8. L-THYROXIN [Concomitant]
     Active Substance: LEVOTHYROXINE SODIUM
     Indication: AUTOIMMUNE THYROIDITIS
     Dosage: 175 MICROGRAM DAILY;
     Route: 064
     Dates: start: 20130906, end: 20140421
  9. NOVORAPID [Concomitant]
     Active Substance: INSULIN ASPART
     Indication: GESTATIONAL DIABETES
     Route: 064
  10. FOLIC ACID RATIOPHARM [Concomitant]
     Indication: PROPHYLAXIS OF NEURAL TUBE DEFECT
     Dosage: 5 MILLIGRAM DAILY;
     Route: 064
     Dates: start: 20130906, end: 20140421
  11. SERTRALINE [Suspect]
     Active Substance: SERTRALINE HYDROCHLORIDE
     Indication: OBSESSIVE-COMPULSIVE DISORDER
     Dosage: 150 MILLIGRAM DAILY;
     Route: 064
     Dates: start: 20130906, end: 20140421

REACTIONS (2)
  - Truncus arteriosus persistent [Fatal]
  - Pulmonary artery stenosis congenital [Fatal]
